FAERS Safety Report 12617419 (Version 1)
Quarter: 2016Q3

REPORT INFORMATION
  Report Type: Spontaneous
  Country: US (occurrence: None)
  Receive Date: 20160802
  Receipt Date: 20160802
  Transmission Date: 20161109
  Serious: No
  Sender: FDA-Public Use
  Company Number: None

PATIENT

DRUGS (2)
  1. PROPRANOLOL HYDROCHLORIDE TEVA [Suspect]
     Active Substance: PROPRANOLOL HYDROCHLORIDE
     Route: 048
  2. PRAVASTATIN. [Suspect]
     Active Substance: PRAVASTATIN
     Dosage: 50 TABKETS, BOTTLE
     Route: 048

REACTIONS (3)
  - Circumstance or information capable of leading to medication error [None]
  - Product size issue [None]
  - Product colour issue [None]
